FAERS Safety Report 5011347-2 (Version None)
Quarter: 2006Q2

REPORT INFORMATION
  Report Type: 
  Country: None (occurrence: None)
  Receive Date: 20060404
  Receipt Date: 20060112
  Transmission Date: 20061013
  Serious: No
  Sender: FDA-Public Use
  Company Number: US200601001571

PATIENT
  Age: 40 Year
  Sex: Female

DRUGS (2)
  1. CYMBALTA [Suspect]
     Dosage: 40 MG
     Dates: start: 20051226, end: 20060102
  2. ANTIPSYCHOTICS [Concomitant]

REACTIONS (5)
  - ENERGY INCREASED [None]
  - IRRITABILITY [None]
  - PARANOIA [None]
  - PSYCHOTIC DISORDER [None]
  - THINKING ABNORMAL [None]
